FAERS Safety Report 8084823-6 (Version None)
Quarter: 2012Q1

REPORT INFORMATION
  Report Type: 
  Country: None (occurrence: None)
  Receive Date: 20120128
  Receipt Date: 20110322
  Transmission Date: 20120608
  Serious: No
  Sender: FDA-Public Use
  Company Number: US-ABBOTT-11P-163-0713612-00

PATIENT
  Age: 28 Year
  Sex: Female

DRUGS (7)
  1. ALBUTEROL [Concomitant]
     Indication: ASTHMA
     Dosage: TWO PUFFS TWO TIMES A DAY
  2. XANAX [Concomitant]
     Indication: ANXIETY
     Dosage: PRN
  3. FLONASE [Concomitant]
     Indication: HYPERSENSITIVITY
     Dosage: ONE SPRAY TWO TIMES A DAY
     Route: 045
  4. FINACEA [Concomitant]
     Indication: ROSACEA
  5. MELOXICAM [Concomitant]
     Indication: RHEUMATOID ARTHRITIS
     Dosage: 15MG DAILY
  6. HUMIRA [Suspect]
     Indication: RHEUMATOID ARTHRITIS
     Dates: start: 20110302
  7. TOBRADEX [Concomitant]
     Indication: CONJUNCTIVITIS

REACTIONS (1)
  - MOUTH ULCERATION [None]
